FAERS Safety Report 9041042 (Version 1)
Quarter: 2013Q1

REPORT INFORMATION
  Report Type: Spontaneous
  Country: US (occurrence: None)
  Receive Date: 20130124
  Receipt Date: 20130124
  Transmission Date: 20140127
  Serious: No
  Sender: FDA-Public Use
  Company Number: None

PATIENT
  Age: 75 Year
  Sex: Female
  Weight: 65.77 kg

DRUGS (1)
  1. WARFARIN [Suspect]
     Indication: ATRIAL FIBRILLATION
     Dosage: 12 OR 14 MG DAILY
     Dates: start: 20110902

REACTIONS (4)
  - Alopecia [None]
  - Abdominal pain [None]
  - Feeling cold [None]
  - Hair growth abnormal [None]
